FAERS Safety Report 9342087 (Version 2)
Quarter: 2013Q3

REPORT INFORMATION
  Report Type: Spontaneous
  Country: CO (occurrence: CO)
  Receive Date: 20130611
  Receipt Date: 20130913
  Transmission Date: 20140515
  Serious: Yes (Death, Hospitalization)
  Sender: FDA-Public Use
  Company Number: CO-UCBSA-088113

PATIENT
  Age: 70 Year
  Sex: Female

DRUGS (6)
  1. CIMZIA [Suspect]
     Indication: RHEUMATOID ARTHRITIS
     Route: 058
     Dates: start: 20120723, end: 20130101
  2. FUROSEMIDE [Concomitant]
     Dosage: UNKNOWN DOSE
  3. PROTOS [Concomitant]
     Dosage: UNKNOWN DOSE
  4. CEFALEXINE [Concomitant]
     Dosage: UNKNOWN DOSE
  5. STRONTIUM RENELATE [Concomitant]
  6. OXYGEN [Concomitant]

REACTIONS (3)
  - Myocardial infarction [Fatal]
  - Bronchitis [Unknown]
  - Generalised oedema [Unknown]
